FAERS Safety Report 19447882 (Version 2)
Quarter: 2021Q2

REPORT INFORMATION
  Report Type: Spontaneous
  Country: GB (occurrence: GB)
  Receive Date: 20210622
  Receipt Date: 20210629
  Transmission Date: 20210717
  Serious: Yes (Hospitalization)
  Sender: FDA-Public Use
  Company Number: GB-TEVA-2021-GB-1926119

PATIENT
  Age: 57 Year
  Sex: Female

DRUGS (2)
  1. ACITRETIN UNK [Suspect]
     Active Substance: ACITRETIN
     Indication: PITYRIASIS RUBRA PILARIS
     Route: 065
  2. CICLOSPORIN [Suspect]
     Active Substance: CYCLOSPORINE
     Indication: PITYRIASIS RUBRA PILARIS
     Route: 065

REACTIONS (2)
  - Pityriasis rubra pilaris [Unknown]
  - Drug ineffective [Unknown]
